FAERS Safety Report 8470898-9 (Version None)
Quarter: 2012Q2

REPORT INFORMATION
  Report Type: 
  Country: None (occurrence: None)
  Receive Date: 20120627
  Receipt Date: 20120622
  Transmission Date: 20120825
  Serious: Yes (Death)
  Sender: FDA-Public Use
  Company Number: US-PFIZER INC-2012150664

PATIENT
  Sex: Female

DRUGS (4)
  1. SUTENT [Suspect]
     Indication: RENAL CANCER
     Dosage: 12.5 MG, UNK
     Dates: start: 20120320
  2. SUTENT [Suspect]
     Indication: HEPATIC NEOPLASM MALIGNANT
  3. SUTENT [Suspect]
     Indication: LUNG NEOPLASM MALIGNANT
  4. SUTENT [Suspect]
     Indication: BONE NEOPLASM MALIGNANT

REACTIONS (1)
  - INTESTINAL OBSTRUCTION [None]
